FAERS Safety Report 8495351-8 (Version None)
Quarter: 2012Q3

REPORT INFORMATION
  Report Type: 
  Country: None (occurrence: None)
  Receive Date: 20120709
  Receipt Date: 20120702
  Transmission Date: 20120928
  Serious: Yes (Hospitalization)
  Sender: FDA-Public Use
  Company Number: US-BAYER-2012-061374

PATIENT
  Age: 25 Year
  Sex: Female
  Weight: 115.65 kg

DRUGS (2)
  1. JOLESSA [Concomitant]
     Dosage: UNK
     Dates: start: 20090810, end: 20090901
  2. YAZ [Suspect]
     Indication: CONTRACEPTION
     Dosage: UNK
     Dates: start: 20081118, end: 20090713

REACTIONS (6)
  - PAIN [None]
  - INJURY [None]
  - PULMONARY EMBOLISM [None]
  - BACK PAIN [None]
  - CHEST PAIN [None]
  - DYSPNOEA [None]
